FAERS Safety Report 10740889 (Version 1)
Quarter: 2015Q1

REPORT INFORMATION
  Report Type: Spontaneous
  Country: HR (occurrence: HR)
  Receive Date: 20150127
  Receipt Date: 20150127
  Transmission Date: 20150721
  Serious: Yes (Hospitalization)
  Sender: FDA-Public Use
  Company Number: HR-TEVA-535342ISR

PATIENT
  Age: 40 Year
  Sex: Male
  Weight: 73 kg

DRUGS (3)
  1. DOXORUBICIN PLIVA [Suspect]
     Active Substance: DOXORUBICIN
     Indication: BREAST CANCER
     Route: 041
     Dates: start: 20130603, end: 20130603
  2. ENDOXAN [Suspect]
     Active Substance: CYCLOPHOSPHAMIDE
     Indication: BREAST CANCER
     Route: 041
     Dates: start: 20130603, end: 20130603
  3. FLUOROURACIL PLIVA [Suspect]
     Active Substance: FLUOROURACIL
     Indication: BREAST CANCER
     Route: 041
     Dates: start: 20130603, end: 20130603

REACTIONS (1)
  - Febrile neutropenia [Recovered/Resolved]

NARRATIVE: CASE EVENT DATE: 20130614
